FAERS Safety Report 5609360-7 (Version None)
Quarter: 2008Q1

REPORT INFORMATION
  Report Type: 
  Country: None (occurrence: None)
  Receive Date: 20080131
  Receipt Date: 20071129
  Transmission Date: 20080703
  Serious: Yes (Death, Life-Threatening, Hospitalization, Disabling, Other)
  Sender: FDA-Public Use
  Company Number: CH-ELI_LILLY_AND_COMPANY-CH200711006802

PATIENT
  Age: 78 Year
  Sex: Female
  Weight: 60 kg

DRUGS (3)
  1. GEMZAR [Suspect]
     Indication: OVARIAN CANCER METASTATIC
     Dosage: 1600 MG, DAY 1, 8 AND 15
     Route: 042
     Dates: start: 20070307
  2. COVERSUM [Concomitant]
     Indication: HYPERTENSION
     Dosage: 8 MG, DAILY (1/D)
     Route: 048
  3. ADALAT CR /SCH/ [Concomitant]
     Indication: HYPERTENSION
     Dosage: 30 MG, DAILY (1/D)
     Route: 048

REACTIONS (5)
  - DEATH [None]
  - GENERAL PHYSICAL HEALTH DETERIORATION [None]
  - HAEMOLYTIC URAEMIC SYNDROME [None]
  - RENAL FAILURE CHRONIC [None]
  - SEPSIS [None]
